FAERS Safety Report 7752221-8 (Version None)
Quarter: 2011Q3

REPORT INFORMATION
  Report Type: 
  Country: None (occurrence: None)
  Receive Date: 20110915
  Receipt Date: 20110906
  Transmission Date: 20111222
  Serious: Yes (Hospitalization, Other)
  Sender: FDA-Public Use
  Company Number: US-BAYER-201022991NA

PATIENT
  Age: 39 Year
  Sex: Female
  Weight: 84 kg

DRUGS (7)
  1. YAZ [Suspect]
     Indication: PREMENSTRUAL SYNDROME
  2. CYMBALTA [Concomitant]
     Indication: DEPRESSION
     Dosage: UNK
     Dates: start: 20070101
  3. YASMIN [Suspect]
     Indication: PREMENSTRUAL SYNDROME
  4. IBUPROFEN [Concomitant]
  5. YAZ [Suspect]
     Indication: CONTRACEPTION
     Dosage: UNK
     Route: 048
     Dates: start: 20050101, end: 20090901
  6. YASMIN [Suspect]
     Indication: CONTRACEPTION
     Dosage: UNK
     Route: 048
     Dates: start: 20050101, end: 20090901
  7. STRATTERA [Concomitant]
     Indication: ATTENTION DEFICIT/HYPERACTIVITY DISORDER
     Dosage: UNK
     Dates: start: 20070101

REACTIONS (13)
  - CHOLECYSTITIS CHRONIC [None]
  - HEADACHE [None]
  - NAUSEA [None]
  - DIARRHOEA HAEMORRHAGIC [None]
  - COLITIS ULCERATIVE [None]
  - BILIARY DYSKINESIA [None]
  - VOMITING [None]
  - PAIN [None]
  - DEHYDRATION [None]
  - ANHEDONIA [None]
  - NEPHROLITHIASIS [None]
  - GALLBLADDER DISORDER [None]
  - ANXIETY [None]
